FAERS Safety Report 7229719-4 (Version None)
Quarter: 2011Q1

REPORT INFORMATION
  Report Type: 
  Country: None (occurrence: None)
  Receive Date: 20110117
  Receipt Date: 20110110
  Transmission Date: 20110831
  Serious: Yes (Hospitalization)
  Sender: FDA-Public Use
  Company Number: FR-BAXTER-2011BH000647

PATIENT
  Age: 46 Year
  Sex: Female

DRUGS (2)
  1. HOLOXAN BAXTER [Suspect]
     Route: 042
     Dates: start: 20100101, end: 20100101
  2. HOLOXAN BAXTER [Suspect]
     Indication: ENDOMETRIAL SARCOMA
     Route: 042
     Dates: start: 20101011, end: 20101014

REACTIONS (1)
  - PERSECUTORY DELUSION [None]
